FAERS Safety Report 10134071 (Version 1)
Quarter: 2014Q2

REPORT INFORMATION
  Report Type: Spontaneous
  Country: IT (occurrence: IT)
  Receive Date: 20140428
  Receipt Date: 20140428
  Transmission Date: 20141212
  Serious: Yes (Other)
  Sender: FDA-Public Use
  Company Number: PHHY2014IT048922

PATIENT
  Age: 53 Year
  Sex: Female

DRUGS (1)
  1. SOTALOLO HEXAL [Suspect]
     Dosage: 80 MG

REACTIONS (1)
  - Respiratory distress [Unknown]
